FAERS Safety Report 4941501-7 (Version None)
Quarter: 2006Q1

REPORT INFORMATION
  Report Type: 
  Country: None (occurrence: None)
  Receive Date: 20060310
  Receipt Date: 20060310
  Transmission Date: 20060701
  Serious: Yes (Life-Threatening, Hospitalization)
  Sender: FDA-Public Use
  Company Number: None

PATIENT
  Age: 84 Year
  Sex: Female
  Weight: 105 kg

DRUGS (7)
  1. ASPIRIN [Suspect]
     Indication: ARTHRALGIA
     Dosage: 6 TABS PO Q6HOURS  (THERAPY DATES:  PRIOR TO ADMIT - 7/28/5)
     Route: 048
     Dates: end: 20050728
  2. BACTRIM [Concomitant]
  3. NORCO [Concomitant]
  4. LASIX [Concomitant]
  5. PLAVIX [Concomitant]
  6. POTASSIUM CL [Concomitant]
  7. PRILOSEC [Concomitant]

REACTIONS (3)
  - GASTROINTESTINAL HAEMORRHAGE [None]
  - HAEMATOCHEZIA [None]
  - SELF-MEDICATION [None]
